FAERS Safety Report 6689753-X (Version None)
Quarter: 2010Q2

REPORT INFORMATION
  Report Type: 
  Country: None (occurrence: None)
  Receive Date: 20100421
  Receipt Date: 20100412
  Transmission Date: 20101027
  Serious: Yes (Hospitalization)
  Sender: FDA-Public Use
  Company Number: US-JNJFOC-20100207755

PATIENT
  Sex: Male
  Weight: 58.97 kg

DRUGS (6)
  1. DURAGESIC-100 [Suspect]
     Indication: BACK PAIN
     Dosage: 100UG/HR AND A 25UG/HR
     Route: 062
  2. DURAGESIC-100 [Suspect]
     Dosage: 100UG/HR PATCH OF THE TOTAL DOSE OF 125 UG/HR PATCH
     Route: 062
  3. DURAGESIC-100 [Suspect]
     Dosage: 100UG/HR 25UG/HR=125UG/HR
     Route: 062
  4. DURAGESIC-100 [Suspect]
     Dosage: THE 25 UG/HR PATCH OF THE TOTAL DOSE OF 125 UG/HR
     Route: 062
  5. SELENIUM [Concomitant]
     Indication: NUTRITIONAL SUPPORT
     Route: 048
  6. SOMA [Concomitant]
     Indication: MYALGIA
     Route: 048

REACTIONS (9)
  - ABASIA [None]
  - DEPRESSION [None]
  - DRUG INEFFECTIVE [None]
  - INTERVERTEBRAL DISC INJURY [None]
  - INTERVERTEBRAL DISC PROTRUSION [None]
  - MALAISE [None]
  - MYOCARDIAL INFARCTION [None]
  - PRODUCT QUALITY ISSUE [None]
  - WITHDRAWAL SYNDROME [None]
